FAERS Safety Report 9926585 (Version 1)
Quarter: 2014Q1

REPORT INFORMATION
  Report Type: Spontaneous
  Country: US (occurrence: US)
  Receive Date: 20140226
  Receipt Date: 20140226
  Transmission Date: 20141002
  Serious: No
  Sender: FDA-Public Use
  Company Number: US-AMGEN-USASP2013074504

PATIENT
  Age: 54 Year
  Sex: Female

DRUGS (18)
  1. ENBREL [Suspect]
     Indication: PRODUCT USED FOR UNKNOWN INDICATION
     Dosage: 50 MG, QWK
     Route: 058
  2. METHOTREXATE [Suspect]
     Indication: PRODUCT USED FOR UNKNOWN INDICATION
     Dosage: 2.5 MG, UNK
     Route: 065
  3. FOLIC ACID [Concomitant]
     Dosage: UNK
  4. LANTUS [Concomitant]
     Dosage: UNK
  5. NOVOLOG [Concomitant]
     Dosage: ,PENFILL ,UNK
  6. ZONISAMIDE [Concomitant]
     Dosage: 100 MG, UNK
  7. NASONEX [Concomitant]
     Dosage: 50 SPR,MCG/AC
  8. ASTEPRO [Concomitant]
     Dosage: 0.15 %, SPR
  9. CYCLOBENZAPRINE [Concomitant]
     Dosage: 10 MG, UNK
  10. AMITRIPTYLIN [Concomitant]
     Dosage: 150 MG, UNK
  11. LISINOPRIL [Concomitant]
     Dosage: 10 MG, UNK
  12. SUMATRIPTAN [Concomitant]
     Dosage: 100 MG, UNK
  13. PROMETHAZINE [Concomitant]
     Dosage: 25 MG, UNK
  14. MULTIVITAMINS, PLAIN [Concomitant]
     Dosage: UNK
  15. CALCIUM +D                         /00944201/ [Concomitant]
     Dosage: UNK
  16. POTASSIUM [Concomitant]
     Dosage: 95 MG, UNK
  17. VITAMIN D                          /00107901/ [Concomitant]
     Dosage: 1000 UNIT, UNK
  18. MELATONIN [Concomitant]
     Dosage: 300 MUG, UNK

REACTIONS (3)
  - Abdominal pain upper [Unknown]
  - Diarrhoea [Unknown]
  - Constipation [Unknown]
